FAERS Safety Report 6181538-6 (Version None)
Quarter: 2009Q2

REPORT INFORMATION
  Report Type: 
  Country: None (occurrence: None)
  Receive Date: 20090506
  Receipt Date: 20090427
  Transmission Date: 20091009
  Serious: Yes (Other)
  Sender: FDA-Public Use
  Company Number: US-B.I. PHARMACEUTICALS,INC./RIDGEFIELD-2009-BP-05304BP

PATIENT
  Sex: Male

DRUGS (17)
  1. MIRAPEX [Suspect]
     Indication: RESTLESS LEGS SYNDROME
     Dates: end: 20081204
  2. REQUIP [Suspect]
     Indication: RESTLESS LEGS SYNDROME
     Route: 048
     Dates: start: 20080201, end: 20080401
  3. PAXIL [Suspect]
     Indication: DRUG USE FOR UNKNOWN INDICATION
  4. EZETIMIBE + SIMVASTATIN [Concomitant]
  5. LISINOPRIL [Concomitant]
  6. ACTOPLUS MET [Concomitant]
  7. CLOPIDOGREL BISULFATE [Concomitant]
  8. ALLOPURINOL [Concomitant]
  9. MECLIZINE [Concomitant]
  10. FLUTICASONE PROPIONATE + SALMETEROL XINAFOATE [Concomitant]
  11. CELECOXIB [Concomitant]
  12. CLOBETASOL PROPIONATE [Concomitant]
  13. TIOTROPIUM [Concomitant]
  14. ZOLPIDEM [Concomitant]
  15. CETIRIZINE HYDROCHLORIDE [Concomitant]
  16. KETOCONAZOLE [Concomitant]
  17. PAROXETINE HYDROCHLORIDE [Concomitant]

REACTIONS (36)
  - ABNORMAL BEHAVIOUR [None]
  - ABNORMAL DREAMS [None]
  - ANGER [None]
  - ANXIETY [None]
  - CHEST PAIN [None]
  - CONFUSIONAL STATE [None]
  - DEPRESSED MOOD [None]
  - DEPRESSION [None]
  - DYSURIA [None]
  - EATING DISORDER [None]
  - EMOTIONAL DISTRESS [None]
  - FALL [None]
  - FEAR [None]
  - FEAR OF DEATH [None]
  - FEELING ABNORMAL [None]
  - FEELING GUILTY [None]
  - FEELING OF DESPAIR [None]
  - FEELINGS OF WORTHLESSNESS [None]
  - HALLUCINATION [None]
  - IMPULSE-CONTROL DISORDER [None]
  - IMPULSIVE BEHAVIOUR [None]
  - INFERIORITY COMPLEX [None]
  - MALAISE [None]
  - MENTAL DISORDER [None]
  - MENTAL IMPAIRMENT [None]
  - NIGHTMARE [None]
  - OBSESSIVE-COMPULSIVE DISORDER [None]
  - PATHOLOGICAL GAMBLING [None]
  - PSYCHIATRIC SYMPTOM [None]
  - RETCHING [None]
  - SELF ESTEEM DECREASED [None]
  - SUICIDAL IDEATION [None]
  - URINARY INCONTINENCE [None]
  - VIOLENCE-RELATED SYMPTOM [None]
  - VISUAL IMPAIRMENT [None]
  - WEIGHT INCREASED [None]
